FAERS Safety Report 8136872-7 (Version None)
Quarter: 2012Q1

REPORT INFORMATION
  Report Type: 
  Country: None (occurrence: None)
  Receive Date: 20120214
  Receipt Date: 20120207
  Transmission Date: 20120608
  Serious: Yes (Death)
  Sender: FDA-Public Use
  Company Number: JP-CELGENEUS-087-21880-11122609

PATIENT
  Sex: Male

DRUGS (16)
  1. LANSOPRAZOLE [Concomitant]
     Dosage: 1 TABLET
     Route: 048
     Dates: start: 20111012, end: 20111202
  2. CANDESARTAN CILEXETIL [Concomitant]
     Dosage: 1 TABLET
     Route: 048
     Dates: start: 20111012, end: 20111202
  3. DEXAMETHASONE ACETATE [Suspect]
     Indication: MULTIPLE MYELOMA
     Dosage: 16 MILLIGRAM
     Route: 048
     Dates: start: 20111012, end: 20111101
  4. ITRACONAZOLE [Concomitant]
     Dosage: 2 TABLET
     Route: 048
     Dates: start: 20111114, end: 20111128
  5. EVIPROSTAT [Concomitant]
     Dosage: 3 TABLET
     Route: 048
     Dates: start: 20111012, end: 20111202
  6. CELECOXIB [Concomitant]
     Dosage: 2 TABLET
     Route: 048
     Dates: start: 20111012, end: 20111127
  7. MAGMITT [Concomitant]
     Dosage: 3 TABLET
     Route: 048
     Dates: start: 20111012, end: 20111202
  8. JANUVIA [Concomitant]
     Dosage: 1 TABLET
     Route: 048
     Dates: start: 20111012, end: 20111202
  9. FLIVAS OD [Concomitant]
     Dosage: 1 TABLET
     Route: 048
     Dates: start: 20111012, end: 20111202
  10. ELSAMET [Concomitant]
     Dosage: 3 TABLET
     Route: 048
     Dates: start: 20111128, end: 20111202
  11. PLAVIX [Concomitant]
     Dosage: 1 TABLET
     Route: 048
     Dates: start: 20111012, end: 20111202
  12. ACETAMINOPHEN [Concomitant]
     Dosage: 2 TABLESPOON
     Route: 048
     Dates: start: 20111114, end: 20111114
  13. REVLIMID [Suspect]
     Indication: MULTIPLE MYELOMA
     Dosage: 15 MILLIGRAM
     Route: 048
     Dates: start: 20111012, end: 20111101
  14. TOWARAT-CR [Concomitant]
     Dosage: 1 TABLET
     Route: 048
     Dates: start: 20111012, end: 20111202
  15. D-ALFA [Concomitant]
     Dosage: 1 CAPSULE
     Route: 048
     Dates: start: 20111104, end: 20111128
  16. ALENDRONATE SODIUM [Concomitant]
     Dosage: 35 MILLIGRAM
     Route: 048
     Dates: start: 20111031, end: 20111114

REACTIONS (1)
  - INTERSTITIAL LUNG DISEASE [None]
